FAERS Safety Report 4683629-5 (Version None)
Quarter: 2005Q2

REPORT INFORMATION
  Report Type: 
  Country: None (occurrence: None)
  Receive Date: 20050602
  Receipt Date: 20050304
  Transmission Date: 20051028
  Serious: No
  Sender: FDA-Public Use
  Company Number: US_0503114322

PATIENT
  Age: 80 Year
  Sex: Female

DRUGS (1)
  1. CYMBALTA [Suspect]
     Dosage: 60 MG/2 DAY
     Dates: start: 20050101

REACTIONS (3)
  - AGITATION [None]
  - HALLUCINATION [None]
  - PRESCRIBED OVERDOSE [None]
